FAERS Safety Report 20575492 (Version 2)
Quarter: 2022Q3

REPORT INFORMATION
  Report Type: Spontaneous
  Country: US (occurrence: US)
  Receive Date: 20220310
  Receipt Date: 20220726
  Transmission Date: 20221027
  Serious: Yes (Other)
  Sender: FDA-Public Use
  Company Number: US-SA-SAC20220307001899

PATIENT
  Age: 60 Year
  Sex: Male

DRUGS (1)
  1. ZANTAC [Suspect]
     Active Substance: RANITIDINE HYDROCHLORIDE
     Indication: Dyspepsia
     Dosage: UNK, QW
     Route: 065
     Dates: start: 199001, end: 201601

REACTIONS (3)
  - Gastric cancer stage II [Not Recovered/Not Resolved]
  - Hepatic cancer stage IV [Not Recovered/Not Resolved]
  - Throat cancer [Unknown]

NARRATIVE: CASE EVENT DATE: 20160101
